FAERS Safety Report 15509408 (Version 1)
Quarter: 2018Q4

REPORT INFORMATION
  Report Type: Spontaneous
  Country: CA (occurrence: CA)
  Receive Date: 20181016
  Receipt Date: 20181016
  Transmission Date: 20190205
  Serious: Yes (Other)
  Sender: FDA-Public Use
  Company Number: None

PATIENT
  Age: 78 Year
  Sex: Female
  Weight: 57.6 kg

DRUGS (11)
  1. DR. REDDY^S ZOLEDRONIC ACID [Suspect]
     Active Substance: ZOLEDRONIC ACID
     Indication: OSTEOPOROSIS
     Dosage: ONCE A YEAR INTRAVENOUS
     Route: 042
     Dates: start: 20180706, end: 20180706
  2. GLUCOSAMINE [Concomitant]
     Active Substance: GLUCOSAMINE
  3. SYNTHROID [Concomitant]
     Active Substance: LEVOTHYROXINE SODIUM
  4. NIGHT GUARD [Concomitant]
  5. DICLOFENAC [Concomitant]
     Active Substance: DICLOFENAC
  6. HERNIA BELT [Concomitant]
  7. PEG 3350 [Concomitant]
     Active Substance: POLYETHYLENE GLYCOL 3350
  8. VALACYCLOVIR [Concomitant]
     Active Substance: VALACYCLOVIR HYDROCHLORIDE
  9. OMNARIS [Concomitant]
     Active Substance: CICLESONIDE
  10. LATANOPROST. [Concomitant]
     Active Substance: LATANOPROST
  11. MULTI VITAMINS/MINERALS [Concomitant]

REACTIONS (9)
  - Pain [None]
  - Groin pain [None]
  - Gait disturbance [None]
  - Arthritis [None]
  - Dyspepsia [None]
  - Loss of personal independence in daily activities [None]
  - Asthenia [None]
  - Sinus congestion [None]
  - Depression [None]

NARRATIVE: CASE EVENT DATE: 20180707
